FAERS Safety Report 9304811 (Version 1)
Quarter: 2013Q2

REPORT INFORMATION
  Report Type: Spontaneous
  Country: US (occurrence: None)
  Receive Date: 20130521
  Receipt Date: 20130521
  Transmission Date: 20140414
  Serious: Yes (Other)
  Sender: FDA-Public Use
  Company Number: None

PATIENT
  Age: 73 Year
  Sex: Female
  Weight: 52.16 kg

DRUGS (8)
  1. AMOXICILLIN [Suspect]
     Indication: COUGH
     Route: 048
     Dates: start: 20130322, end: 20130326
  2. AMOXICILLIN [Suspect]
     Indication: SINUS DISORDER
     Route: 048
     Dates: start: 20130322, end: 20130326
  3. BYSTOLIC [Concomitant]
  4. MULTI-VITAMINS [Concomitant]
  5. VITAMIN C [Concomitant]
  6. VITAMIN D3 [Concomitant]
  7. COQ10 [Concomitant]
  8. GLUCOSAMINE-CHONDROITIN-MSM [Concomitant]

REACTIONS (3)
  - Pain [None]
  - Gait disturbance [None]
  - Movement disorder [None]
